FAERS Safety Report 14217840 (Version 1)
Quarter: 2017Q4

REPORT INFORMATION
  Report Type: Spontaneous
  Country: US (occurrence: US)
  Receive Date: 20171123
  Receipt Date: 20171123
  Transmission Date: 20180321
  Serious: No
  Sender: FDA-Public Use
  Company Number: US-BEH-2017085258

PATIENT
  Sex: Female

DRUGS (1)
  1. PRIVIGEN [Suspect]
     Active Substance: HUMAN IMMUNOGLOBULIN G
     Indication: UPPER MOTOR NEURONE LESION
     Dosage: UNK, QOW
     Route: 065
     Dates: start: 2014

REACTIONS (1)
  - Speech disorder [Unknown]
